FAERS Safety Report 21299742 (Version 1)
Quarter: 2022Q3

REPORT INFORMATION
  Report Type: Spontaneous
  Country: JP (occurrence: JP)
  Receive Date: 20220906
  Receipt Date: 20220906
  Transmission Date: 20221026
  Serious: Yes (Hospitalization, Other)
  Sender: FDA-Public Use
  Company Number: JP-PFIZER INC-202201114819

PATIENT
  Age: 68 Year
  Sex: Male

DRUGS (4)
  1. OXALIPLATIN [Suspect]
     Active Substance: OXALIPLATIN
     Indication: Colon cancer
     Dosage: UNK
     Dates: start: 20210609, end: 20210804
  2. LEUCOVORIN CALCIUM [Suspect]
     Active Substance: LEUCOVORIN CALCIUM
     Indication: Colon cancer
     Dosage: UNK
     Dates: start: 20210609, end: 20210804
  3. FLUOROURACIL [Suspect]
     Active Substance: FLUOROURACIL
     Indication: Colon cancer
     Dosage: UNK
     Dates: start: 20210609, end: 20210804
  4. PANITUMUMAB [Suspect]
     Active Substance: PANITUMUMAB
     Indication: Colon cancer
     Dosage: UNK
     Dates: start: 20210609, end: 20210804

REACTIONS (7)
  - Neoplasm progression [Unknown]
  - Superior mesenteric artery syndrome [Unknown]
  - Hydronephrosis [Unknown]
  - Vomiting [Unknown]
  - Back pain [Unknown]
  - Constipation [Recovering/Resolving]
  - Nausea [Unknown]

NARRATIVE: CASE EVENT DATE: 20210101
